FAERS Safety Report 9616583 (Version 2)
Quarter: 2013Q4

REPORT INFORMATION
  Report Type: Spontaneous
  Country: JP (occurrence: JP)
  Receive Date: 20131011
  Receipt Date: 20131121
  Transmission Date: 20140711
  Serious: Yes (Hospitalization)
  Sender: FDA-Public Use
  Company Number: JP-ABBVIE-13P-087-1156179-00

PATIENT
  Age: 38 Year
  Sex: Male

DRUGS (7)
  1. CLARITHROMYCIN [Suspect]
     Indication: HELICOBACTER INFECTION
     Route: 048
     Dates: start: 20130824, end: 20130826
  2. CLARITHROMYCIN [Suspect]
     Indication: HELICOBACTER INFECTION
     Route: 048
     Dates: start: 20130824, end: 20130826
  3. LANSOPRAZOLE [Suspect]
     Indication: HELICOBACTER INFECTION
     Route: 048
     Dates: start: 20130824, end: 20130826
  4. AMOXICILLIN [Suspect]
     Indication: HELICOBACTER INFECTION
     Route: 048
     Dates: start: 20130824, end: 20130826
  5. FLUMARIN [Suspect]
     Indication: INFECTION
     Route: 041
     Dates: start: 20130807, end: 20130816
  6. OMEPRAZOL [Suspect]
     Indication: GASTRIC ULCER
     Route: 041
     Dates: start: 20130807, end: 20130813
  7. PARIET [Suspect]
     Indication: GASTRIC ULCER
     Route: 048
     Dates: start: 20130814, end: 20130823

REACTIONS (2)
  - Lymphocytosis [Recovering/Resolving]
  - Granulocytopenia [Recovering/Resolving]
